FAERS Safety Report 6972648-1 (Version None)
Quarter: 2010Q3

REPORT INFORMATION
  Report Type: 
  Country: None (occurrence: None)
  Receive Date: 20100907
  Receipt Date: 20100820
  Transmission Date: 20110219
  Serious: Yes (Life-Threatening)
  Sender: FDA-Public Use
  Company Number: 2280705-2010-00014

PATIENT
  Sex: Male

DRUGS (1)
  1. ORAJEL? MEDICATED COLD SORE BRUSH TOPICAL ANALGESIC /SKIN PROTECTANT [Suspect]
     Dosage: APPLIED TO CHEEK
     Dates: start: 20100815

REACTIONS (1)
  - ANAPHYLACTIC REACTION [None]
